FAERS Safety Report 12531007 (Version 1)
Quarter: 2016Q3

REPORT INFORMATION
  Report Type: Spontaneous
  Country: US (occurrence: None)
  Receive Date: 20160705
  Receipt Date: 20160705
  Transmission Date: 20161109
  Serious: Yes (Disabling)
  Sender: FDA-Public Use
  Company Number: None

PATIENT
  Age: 78 Year
  Sex: Female
  Weight: 73.94 kg

DRUGS (15)
  1. ULTRAM [Concomitant]
     Active Substance: TRAMADOL HYDROCHLORIDE
  2. VITAMIN E [Concomitant]
     Active Substance: .ALPHA.-TOCOPHEROL
  3. CLEOCIN [Suspect]
     Active Substance: CLINDAMYCIN PHOSPHATE
     Indication: CELLULITIS
     Dosage: 1 CAPSUE EVERY SIX HOURS - 7 DAYS 28 TOTAL BY MOUTH
     Route: 048
     Dates: start: 20160607, end: 20160609
  4. ASPIRIN. [Concomitant]
     Active Substance: ASPIRIN
  5. LOSARTIN [Concomitant]
     Active Substance: LOSARTAN
  6. CALCIUM PLUS VIT. D3 [Concomitant]
  7. VITAMIN D3 [Concomitant]
     Active Substance: CHOLECALCIFEROL
  8. LUTEIN [Concomitant]
     Active Substance: LUTEIN
  9. OMEGA 3 PLUS CO Q-10 [Concomitant]
  10. COENZYME Q10 [Concomitant]
     Active Substance: UBIDECARENONE
  11. ALTACE [Concomitant]
     Active Substance: RAMIPRIL
  12. MECLIZINE [Concomitant]
     Active Substance: MECLIZINE HYDROCHLORIDE
  13. SYNTHROID (GENERIC) [Concomitant]
  14. VITAMIN C [Concomitant]
     Active Substance: ASCORBIC ACID
  15. MULTIVITAMIN [Concomitant]
     Active Substance: VITAMINS

REACTIONS (5)
  - Fatigue [None]
  - Abdominal distension [None]
  - Hypersensitivity [None]
  - Diarrhoea haemorrhagic [None]
  - Hot flush [None]

NARRATIVE: CASE EVENT DATE: 20160609
